FAERS Safety Report 4432757-8 (Version None)
Quarter: 2004Q3

REPORT INFORMATION
  Report Type: 
  Country: None (occurrence: None)
  Receive Date: 20040820
  Receipt Date: 20040806
  Transmission Date: 20050211
  Serious: Yes (Disabling, Other)
  Sender: FDA-Public Use
  Company Number: 2004039100

PATIENT
  Age: 55 Year
  Sex: Female
  Weight: 69 kg

DRUGS (3)
  1. RELPAX [Suspect]
     Indication: MIGRAINE
     Dosage: 160 MG (80 MG, 2 IN 1 D), ORAL
     Route: 048
     Dates: start: 20031101
  2. CONJUGATED ESTROGENS [Concomitant]
  3. CAFERGOT [Concomitant]

REACTIONS (2)
  - COLITIS ISCHAEMIC [None]
  - DRUG EFFECT DECREASED [None]
